FAERS Safety Report 15640561 (Version 1)
Quarter: 2018Q4

REPORT INFORMATION
  Report Type: Spontaneous
  Country: US (occurrence: US)
  Receive Date: 20181120
  Receipt Date: 20181120
  Transmission Date: 20190205
  Serious: No
  Sender: FDA-Public Use
  Company Number: US-PFIZER INC-2018468508

PATIENT
  Age: 51 Year

DRUGS (2)
  1. IODINE. [Suspect]
     Active Substance: IODINE
     Dosage: UNK
     Dates: start: 20181106
  2. TETRACYCLINE HCL [Suspect]
     Active Substance: TETRACYCLINE HYDROCHLORIDE
     Dosage: UNK
     Dates: start: 20181106

REACTIONS (1)
  - Drug hypersensitivity [Unknown]
